FAERS Safety Report 10219236 (Version 1)
Quarter: 2014Q2

REPORT INFORMATION
  Report Type: Spontaneous
  Country: US (occurrence: None)
  Receive Date: 20140604
  Receipt Date: 20140604
  Transmission Date: 20141212
  Serious: Yes (Life-Threatening)
  Sender: FDA-Public Use
  Company Number: None

PATIENT
  Age: 11 Year
  Sex: Male

DRUGS (1)
  1. LUPRON DEPOT [Suspect]
     Indication: CEREBRAL CYST
     Dosage: 15MG, EVERY 29 DAYS, INTRAMUSCULAR
     Route: 030
     Dates: start: 20130102, end: 20140512

REACTIONS (1)
  - Brain oedema [None]
